FAERS Safety Report 19197177 (Version 12)
Quarter: 2024Q1

REPORT INFORMATION
  Report Type: Spontaneous
  Country: IN (occurrence: IN)
  Receive Date: 20210429
  Receipt Date: 20240125
  Transmission Date: 20240410
  Serious: Yes (Other)
  Sender: FDA-Public Use
  Company Number: IN-PFIZER INC-2020268843

PATIENT
  Age: 72 Year
  Sex: Male

DRUGS (7)
  1. INLYTA [Suspect]
     Active Substance: AXITINIB
     Indication: Metastatic renal cell carcinoma
     Dosage: 5 MG, 1X/DAY
     Route: 048
     Dates: start: 202006
  2. INLYTA [Suspect]
     Active Substance: AXITINIB
     Dosage: 10 MG
  3. INLYTA [Suspect]
     Active Substance: AXITINIB
     Dosage: 6 MG, 2X/DAY
     Route: 048
     Dates: start: 20200701
  4. INLYTA [Suspect]
     Active Substance: AXITINIB
     Dosage: 5 MG, 2X/DAY
     Route: 048
     Dates: start: 20200706
  5. INLYTA [Suspect]
     Active Substance: AXITINIB
     Dosage: 3 MG, 2X/DAY
     Route: 048
     Dates: start: 202007
  6. INLYTA [Suspect]
     Active Substance: AXITINIB
     Dosage: 6 MG, 1X/DAY
     Route: 048
  7. INLYTA [Suspect]
     Active Substance: AXITINIB
     Dosage: 3 MG, 2X/DAY
     Route: 048

REACTIONS (12)
  - Skin toxicity [Unknown]
  - Coronary artery disease [Unknown]
  - Hypertension [Recovering/Resolving]
  - Mouth ulceration [Unknown]
  - Diarrhoea [Unknown]
  - Arthritis [Unknown]
  - Gouty arthritis [Unknown]
  - Blood pressure fluctuation [Unknown]
  - Neoplasm progression [Unknown]
  - Hypoacusis [Unknown]
  - Urinary tract infection [Unknown]
  - Off label use [Unknown]
